FAERS Safety Report 9809369 (Version 3)
Quarter: 2014Q3

REPORT INFORMATION
  Report Type: Spontaneous
  Country: US (occurrence: US)
  Receive Date: 20140110
  Receipt Date: 20140812
  Transmission Date: 20150326
  Serious: Yes (Hospitalization, Other)
  Sender: FDA-Public Use
  Company Number: US-009507513-1401USA004097

PATIENT
  Sex: Female

DRUGS (1)
  1. NUVARING [Suspect]
     Active Substance: ETHINYL ESTRADIOL\ETONOGESTREL
     Indication: CONTRACEPTION
     Dosage: UNK
     Route: 067
     Dates: start: 200606, end: 20080610

REACTIONS (20)
  - Intracranial venous sinus thrombosis [Recovering/Resolving]
  - Blood uric acid increased [Unknown]
  - Asthma [Unknown]
  - Upper respiratory tract infection [Unknown]
  - Ear pain [Unknown]
  - Nephrolithiasis [Unknown]
  - Head injury [Unknown]
  - Abdominal pain [Unknown]
  - Migraine with aura [Unknown]
  - Headache [Not Recovered/Not Resolved]
  - Anxiety [Unknown]
  - Depression [Unknown]
  - Menorrhagia [Unknown]
  - Insomnia [Unknown]
  - Presyncope [Unknown]
  - Presyncope [Unknown]
  - Hypotension [Unknown]
  - Cerebrovascular accident [Unknown]
  - Pulmonary embolism [Unknown]
  - Dehydration [Unknown]

NARRATIVE: CASE EVENT DATE: 200805
